FAERS Safety Report 9846196 (Version 2)
Quarter: 2014Q1

REPORT INFORMATION
  Report Type: Spontaneous
  Country: IT (occurrence: None)
  Receive Date: 20140123
  Receipt Date: 20140304
  Transmission Date: 20141002
  Serious: Yes (Other)
  Sender: FDA-Public Use
  Company Number: 2014AP000294

PATIENT
  Age: 67 Year
  Sex: Male

DRUGS (4)
  1. SILDENAFIL [Suspect]
     Indication: ERECTILE DYSFUNCTION
     Dosage: TAB,PO;TOTAL
     Route: 048
     Dates: start: 20131208, end: 20131208
  2. TORVAST (ATORVASTATIN CALCIUM) [Concomitant]
  3. TICAGRELOR (TICAGRELOR) [Concomitant]
  4. ANTHIHYPERTENSIVES (ANTIHYPERTENSIVES) [Concomitant]

REACTIONS (3)
  - Head injury [None]
  - Loss of consciousness [None]
  - Syncope [None]
